FAERS Safety Report 20842930 (Version 2)
Quarter: 2022Q2

REPORT INFORMATION
  Report Type: Spontaneous
  Country: PT (occurrence: PT)
  Receive Date: 20220518
  Receipt Date: 20220518
  Transmission Date: 20220721
  Serious: Yes (Other)
  Sender: FDA-Public Use
  Company Number: PT-SUN PHARMACEUTICAL INDUSTRIES LTD-2022R1-336620

PATIENT
  Age: 80 Year
  Sex: Female

DRUGS (1)
  1. CARBIDOPA\LEVODOPA [Suspect]
     Active Substance: CARBIDOPA\LEVODOPA
     Indication: Gait disturbance
     Dosage: 25/100, TID
     Route: 065

REACTIONS (3)
  - Therapy non-responder [Unknown]
  - Gastrointestinal disorder [Unknown]
  - Orthostatic hypotension [Unknown]
